FAERS Safety Report 5334524-X (Version None)
Quarter: 2007Q2

REPORT INFORMATION
  Report Type: 
  Country: None (occurrence: None)
  Receive Date: 20070525
  Receipt Date: 20070517
  Transmission Date: 20071010
  Serious: Yes (Hospitalization)
  Sender: FDA-Public Use
  Company Number: US-JNJFOC-20070303795

PATIENT
  Age: 52 Year
  Sex: Female
  Weight: 65.32 kg

DRUGS (4)
  1. REMICADE [Suspect]
     Indication: RHEUMATOID ARTHRITIS
     Dosage: EVERY EIGHT WEEKS
     Route: 042
  2. PREDNISONE TAB [Concomitant]
  3. FOLIC ACID [Concomitant]
  4. ALEVE [Concomitant]

REACTIONS (3)
  - SEPSIS [None]
  - UROSEPSIS [None]
  - WEIGHT DECREASED [None]
